FAERS Safety Report 12399220 (Version 1)
Quarter: 2016Q2

REPORT INFORMATION
  Report Type: Report from Study
  Country: ES (occurrence: ES)
  Receive Date: 20160524
  Receipt Date: 20160524
  Transmission Date: 20160815
  Serious: Yes (Death, Hospitalization)
  Sender: FDA-Public Use
  Company Number: ES-ROCHE-1758462

PATIENT
  Age: 60 Year
  Sex: Male

DRUGS (7)
  1. PANTOPRAZOL [Concomitant]
     Active Substance: PANTOPRAZOLE SODIUM
     Route: 065
  2. FLUTICASONE/SALMETEROL [Concomitant]
     Active Substance: FLUTICASONE PROPIONATE\SALMETEROL XINAFOATE
     Route: 065
  3. RO 6895882 (CEA-IL2V) [Suspect]
     Active Substance: INVESTIGATIONAL PRODUCT
     Indication: METASTATIC NEOPLASM
     Dosage: LAST DOSE PRIOR TO SAE: 11/MAY/2016
     Route: 042
     Dates: start: 20160511, end: 20160511
  4. BEMIPARIN [Concomitant]
     Route: 065
  5. PENTOXIFYLLIN [Concomitant]
     Active Substance: PENTOXIFYLLINE
     Route: 065
  6. TIOPRONINE [Concomitant]
  7. ATEZOLIZUMAB [Suspect]
     Active Substance: ATEZOLIZUMAB
     Indication: METASTATIC NEOPLASM
     Dosage: LAST DOSE PRIOR TO SAE: 11/MAY/2016
     Route: 042
     Dates: start: 20160511, end: 20160511

REACTIONS (2)
  - Acute kidney injury [Recovering/Resolving]
  - Capillary leak syndrome [Fatal]

NARRATIVE: CASE EVENT DATE: 20160512
